FAERS Safety Report 5350876-9 (Version None)
Quarter: 2007Q2

REPORT INFORMATION
  Report Type: 
  Country: None (occurrence: None)
  Receive Date: 20070608
  Receipt Date: 20070601
  Transmission Date: 20071010
  Serious: Yes (Death)
  Sender: FDA-Public Use
  Company Number: B0473395A

PATIENT
  Age: 72 Year
  Sex: Male

DRUGS (1)
  1. ZOVIRAX [Suspect]
     Dosage: 500MG TWICE PER DAY
     Route: 042
     Dates: start: 20070521, end: 20070523

REACTIONS (1)
  - DRUG LEVEL INCREASED [None]
